FAERS Safety Report 8913153 (Version 1)
Quarter: 2012Q4

REPORT INFORMATION
  Report Type: 
  Country: GB (occurrence: GB)
  Receive Date: 20121116
  Receipt Date: 20121116
  Transmission Date: 20130627
  Serious: Yes (Hospitalization)
  Sender: FDA-Public Use
  Company Number: GB-WATSON-2012-19524

PATIENT
  Age: 56 Year
  Sex: Male
  Weight: 90 kg

DRUGS (1)
  1. ACYCLOVIR (UNKNOWN) [Suspect]
     Indication: ENCEPHALITIS HERPES
     Dosage: Unknown
     Route: 065

REACTIONS (5)
  - Brain injury [Unknown]
  - Disability [Unknown]
  - Nerve injury [Unknown]
  - Medication error [Unknown]
  - Treatment noncompliance [Unknown]
